FAERS Safety Report 5068721-8 (Version None)
Quarter: 2006Q3

REPORT INFORMATION
  Report Type: 
  Country: None (occurrence: None)
  Receive Date: 20060802
  Receipt Date: 20060228
  Transmission Date: 20061208
  Serious: No
  Sender: FDA-Public Use
  Company Number: US-BRISTOL-MYERS SQUIBB COMPANY-13298815

PATIENT
  Age: 63 Year
  Sex: Male
  Weight: 110 kg

DRUGS (2)
  1. COUMADIN [Suspect]
     Indication: ARRHYTHMIA
     Dates: start: 20010101
  2. VERAPAMIL [Concomitant]

REACTIONS (2)
  - ABDOMINAL DISTENSION [None]
  - GASTROINTESTINAL PAIN [None]
